FAERS Safety Report 19308993 (Version 2)
Quarter: 2021Q2

REPORT INFORMATION
  Report Type: Report from Study
  Country: US (occurrence: US)
  Receive Date: 20210526
  Receipt Date: 20210531
  Transmission Date: 20210717
  Serious: Yes (Death, Life-Threatening, Hospitalization, Other)
  Sender: FDA-Public Use
  Company Number: US-BRISTOL-MYERS SQUIBB COMPANY-BMS-2021-048650

PATIENT
  Sex: Male

DRUGS (12)
  1. NIVOLUMAB [Suspect]
     Active Substance: NIVOLUMAB
     Indication: ACUTE MYELOID LEUKAEMIA
     Dosage: 3 MILLIGRAM/KILOGRAM ON DAY 8 AND DAY 22
     Route: 042
     Dates: start: 20210427
  2. ACYCLOVIR [ACICLOVIR] [Concomitant]
     Active Substance: ACYCLOVIR
     Indication: PRODUCT USED FOR UNKNOWN INDICATION
     Dosage: 400 MILLIGRAM, BID
     Route: 048
     Dates: start: 20210412
  3. ONDANSETRON [Concomitant]
     Active Substance: ONDANSETRON
     Indication: PRODUCT USED FOR UNKNOWN INDICATION
     Dosage: 8 MILLIGRAM, Q8H AS NEEDED
     Route: 048
     Dates: end: 20210511
  4. VENETOCLAX. [Concomitant]
     Active Substance: VENETOCLAX
     Dosage: 100 MILLIGRAM (TAKE WITH 8 OUNCES OF WATER WITHIN 30 MINUTES OF A MEAL)
     Route: 048
     Dates: end: 20210504
  5. DULOXETINE HCL [Concomitant]
     Active Substance: DULOXETINE HYDROCHLORIDE
     Indication: PRODUCT USED FOR UNKNOWN INDICATION
     Dosage: 20 MILLIGRAM (2 CAPSULES 40 MG FOR 1 WEEK)
     Route: 048
  6. VENETOCLAX. [Concomitant]
     Active Substance: VENETOCLAX
     Indication: ACUTE MYELOID LEUKAEMIA
     Dosage: 100 MILLIGRAM ON DAY 1
     Route: 065
  7. VENETOCLAX. [Concomitant]
     Active Substance: VENETOCLAX
     Dosage: 200 MILLIGRAM ON DAY 2
     Route: 065
  8. VENETOCLAX. [Concomitant]
     Active Substance: VENETOCLAX
     Dosage: 400 MILLIGRAM ON DAY 3?21
     Route: 065
  9. DULOXETINE HCL [Concomitant]
     Active Substance: DULOXETINE HYDROCHLORIDE
     Dosage: 20 MILLIGRAM 1 CAPSULE DAILY ONE WEEK
     Dates: end: 20210514
  10. 5?AZACYTIDINE [Suspect]
     Active Substance: AZACITIDINE
     Indication: ACUTE MYELOID LEUKAEMIA
     Dosage: 75 MILLIGRAM/SQ. METER/DAY FOR DAYS 1?7
     Route: 042
     Dates: start: 20210420
  11. MAGIC MOUTHWASH [Concomitant]
     Active Substance: DIPHENHYDRAMINE HYDROCHLORIDE\LIDOCAINE HYDROCHLORIDE\NYSTATIN
     Indication: PRODUCT USED FOR UNKNOWN INDICATION
     Dosage: SWISH AND SPIT 10 ML BY MOUTH 4 TIMES A DAY
     Route: 048
     Dates: end: 20210512
  12. OXYCODONE HYDROCHLORIDE. [Concomitant]
     Active Substance: OXYCODONE HYDROCHLORIDE
     Indication: PRODUCT USED FOR UNKNOWN INDICATION
     Dosage: 5 MILLIGRAM, AS NEEDED
     Route: 048
     Dates: end: 20210511

REACTIONS (1)
  - Pneumonia [Fatal]

NARRATIVE: CASE EVENT DATE: 20210517
